FAERS Safety Report 6220863-7 (Version None)
Quarter: 2009Q2

REPORT INFORMATION
  Report Type: 
  Country: None (occurrence: None)
  Receive Date: 20090610
  Receipt Date: 20090525
  Transmission Date: 20091009
  Serious: Yes (Life-Threatening, Hospitalization, Other)
  Sender: FDA-Public Use
  Company Number: PHHY2009JP15611

PATIENT
  Sex: Male

DRUGS (2)
  1. AMN107 AMN+CAP [Suspect]
     Indication: CHRONIC MYELOID LEUKAEMIA
     Dosage: 800 MG/DAY
     Route: 048
     Dates: start: 20090319, end: 20090408
  2. SUMIFERON [Suspect]
     Indication: CHRONIC MYELOID LEUKAEMIA
     Dosage: 6 MIU DAILY
     Route: 042
     Dates: start: 20080401, end: 20090408

REACTIONS (4)
  - BLOOD BILIRUBIN INCREASED [None]
  - BLOOD PHOSPHORUS DECREASED [None]
  - ELECTROCARDIOGRAM QT PROLONGED [None]
  - PLATELET COUNT DECREASED [None]
